FAERS Safety Report 6544337-9 (Version None)
Quarter: 2010Q1

REPORT INFORMATION
  Report Type: 
  Country: None (occurrence: None)
  Receive Date: 20100120
  Receipt Date: 20100120
  Transmission Date: 20100710
  Serious: No
  Sender: FDA-Public Use
  Company Number: None

PATIENT
  Age: 50 Year
  Sex: Female
  Weight: 67.1324 kg

DRUGS (1)
  1. TYLENOL (CAPLET) [Suspect]
     Indication: DYSMENORRHOEA
     Dosage: 500 MG X2 2 TIMES PO
     Route: 048
     Dates: start: 20091121, end: 20091128

REACTIONS (4)
  - ABDOMINAL PAIN UPPER [None]
  - NAUSEA [None]
  - PAIN [None]
  - VOMITING [None]
